FAERS Safety Report 12507427 (Version 1)
Quarter: 2016Q2

REPORT INFORMATION
  Report Type: Spontaneous
  Country: US (occurrence: None)
  Receive Date: 20160628
  Receipt Date: 20160628
  Transmission Date: 20160815
  Serious: Yes (Death, Hospitalization)
  Sender: FDA-Public Use
  Company Number: None

PATIENT
  Age: 85 Year
  Weight: 134.72 kg

DRUGS (4)
  1. ELIQUIS [Suspect]
     Active Substance: APIXABAN
     Indication: ATRIAL FIBRILLATION
     Dates: start: 20150101, end: 20151001
  2. PACE MAKER [Concomitant]
  3. KRILL OIL [Concomitant]
     Active Substance: DIETARY SUPPLEMENT
  4. MULTIVITAMIN [Concomitant]
     Active Substance: VITAMINS

REACTIONS (3)
  - General physical health deterioration [None]
  - Faeces discoloured [None]
  - Blood urine present [None]

NARRATIVE: CASE EVENT DATE: 20150601
